FAERS Safety Report 8080322-6 (Version None)
Quarter: 2012Q1

REPORT INFORMATION
  Report Type: 
  Country: None (occurrence: None)
  Receive Date: 20120130
  Receipt Date: 20120126
  Transmission Date: 20120608
  Serious: Yes (Other)
  Sender: FDA-Public Use
  Company Number: US-PFIZER INC-2012023205

PATIENT
  Sex: Female
  Weight: 117 kg

DRUGS (4)
  1. ASPIRIN [Concomitant]
     Dosage: 325 MG, DAILY
  2. LEVOTHYROXINE [Concomitant]
     Indication: THYROID DISORDER
     Dosage: 150 UG, DAILY
  3. TRAMADOL HCL [Suspect]
     Dosage: UNK
  4. SERTRALINE HYDROCHLORIDE [Suspect]
     Indication: BIPOLAR DISORDER
     Dosage: 100 MG, DAILY

REACTIONS (1)
  - CEREBROVASCULAR ACCIDENT [None]
